FAERS Safety Report 23386841 (Version 1)
Quarter: 2024Q1

REPORT INFORMATION
  Report Type: Spontaneous
  Country: GB (occurrence: GB)
  Receive Date: 20240110
  Receipt Date: 20240110
  Transmission Date: 20240410
  Serious: Yes (Other)
  Sender: FDA-Public Use
  Company Number: GB-MHRA-MED-202308181650355030-RHTMP

PATIENT
  Age: 53 Year
  Weight: 54 kg

DRUGS (1)
  1. ROPINIROLE [Suspect]
     Active Substance: ROPINIROLE
     Indication: Restless legs syndrome
     Route: 065
     Dates: start: 20200901

REACTIONS (2)
  - Impulse-control disorder [Not Recovered/Not Resolved]
  - Gambling disorder [Unknown]
